FAERS Safety Report 5217174-5 (Version None)
Quarter: 2007Q1

REPORT INFORMATION
  Report Type: 
  Country: None (occurrence: None)
  Receive Date: 20070122
  Receipt Date: 20070122
  Transmission Date: 20070707
  Serious: Yes (Other)
  Sender: FDA-Public Use
  Company Number: None

PATIENT
  Age: 58 Year
  Sex: Female

DRUGS (6)
  1. MAXZIDE [Suspect]
     Indication: HYPERTENSION
     Dosage: 25MG QD PO
     Route: 048
     Dates: start: 20011001, end: 20061004
  2. DOCUSATE NA [Concomitant]
  3. LANSOPRAZOLE [Concomitant]
  4. PHENAZOPYRIDINE HCL TAB [Concomitant]
  5. HUMIBID SR [Concomitant]
  6. ESTROGENS SOL/INJ [Concomitant]

REACTIONS (2)
  - DRUG INEFFECTIVE [None]
  - HYPERCALCAEMIA [None]
